FAERS Safety Report 4469544-0 (Version None)
Quarter: 2004Q4

REPORT INFORMATION
  Report Type: 
  Country: None (occurrence: None)
  Receive Date: 20041005
  Receipt Date: 20040924
  Transmission Date: 20050328
  Serious: Yes (Other)
  Sender: FDA-Public Use
  Company Number: 200412743GDS

PATIENT
  Age: 35 Year
  Sex: Female

DRUGS (4)
  1. ASPIRIN [Suspect]
     Dosage: 100 MG, QD; ORAL
     Route: 048
     Dates: start: 20040101
  2. CLORANA [Concomitant]
  3. VERAPAMIL [Concomitant]
  4. GLIBENCLAMIDE [Concomitant]

REACTIONS (2)
  - HEADACHE [None]
  - PHARYNGEAL HAEMORRHAGE [None]
